FAERS Safety Report 8175190-8 (Version None)
Quarter: 2012Q1

REPORT INFORMATION
  Report Type: 
  Country: None (occurrence: None)
  Receive Date: 20120229
  Receipt Date: 20120223
  Transmission Date: 20120608
  Serious: Yes (Hospitalization, Other)
  Sender: FDA-Public Use
  Company Number: US-PFIZER INC-US-WYE-H09045309

PATIENT
  Sex: Female

DRUGS (3)
  1. PREMARIN [Suspect]
     Dosage: UNK
     Route: 048
  2. CYCRIN [Suspect]
     Dosage: UNK
     Route: 048
  3. PROVERA [Suspect]
     Dosage: UNK
     Route: 048

REACTIONS (1)
  - BREAST CANCER RECURRENT [None]
